FAERS Safety Report 8778871 (Version 1)
Quarter: 2012Q4

REPORT INFORMATION
  Report Type: 
  Country: BR (occurrence: BR)
  Receive Date: 20120912
  Receipt Date: 20120912
  Transmission Date: 20130627
  Serious: Yes (Hospitalization, Other)
  Sender: FDA-Public Use
  Company Number: PHHY2012BR078890

PATIENT
  Age: 61 Year
  Sex: Female
  Weight: 72 kg

DRUGS (6)
  1. FORASEQ [Suspect]
     Indication: DYSPNOEA
     Dosage: 1 DF(12/400mcg) BID
     Dates: start: 2008
  2. FORASEQ [Suspect]
     Dosage: 1 DF(12/400mcg) BID
  3. PROPRANOLOL [Concomitant]
     Indication: HYPERTENSION
     Dosage: 40 mg, BID
     Dates: start: 2005
  4. AMOXICILLIN [Concomitant]
     Indication: APPENDICITIS
     Dosage: 1 DF, BID (875mg+125mg )
     Dates: start: 20120905
  5. PARACETAMOL [Concomitant]
     Indication: PAIN
     Dosage: 750 mg, Q6H
     Dates: start: 20120905
  6. POLARAMINE [Concomitant]
     Indication: HYPERSENSITIVITY
     Dosage: 2 DF, UNK
     Dates: start: 20120905

REACTIONS (6)
  - Appendicitis [Recovering/Resolving]
  - Abdominal pain [Not Recovered/Not Resolved]
  - Intervertebral disc degeneration [Recovering/Resolving]
  - Blister [Not Recovered/Not Resolved]
  - Dyspnoea [Recovered/Resolved]
  - Appendicitis perforated [None]
